FAERS Safety Report 8960110 (Version 2)
Quarter: 2012Q4

REPORT INFORMATION
  Report Type: 
  Country: AT (occurrence: AT)
  Receive Date: 20121212
  Receipt Date: 20121220
  Transmission Date: 20130627
  Serious: Yes (Other)
  Sender: FDA-Public Use
  Company Number: AT-PFIZER INC-2012306238

PATIENT
  Age: 42 Year
  Sex: Female
  Weight: 86 kg

DRUGS (4)
  1. SEROQUEL XR [Suspect]
     Indication: ANTIDEPRESSANT THERAPY
     Dosage: 800 mg, 1x/day
     Dates: start: 20121024, end: 20121205
  2. EFECTIN ER [Concomitant]
     Indication: ANTIDEPRESSANT THERAPY
     Dosage: 225 mg, 1x/day
     Dates: start: 20121024
  3. TEMESTA [Concomitant]
     Indication: ANTIDEPRESSANT THERAPY
     Dosage: 2 mg, 1x/day
     Dates: start: 20121024
  4. TRITTICO RETARD [Concomitant]
     Indication: ANTIDEPRESSANT THERAPY
     Dosage: 150 mg, 1x/day
     Dates: start: 20121206

REACTIONS (2)
  - Pleural effusion [Recovered/Resolved]
  - Pericardial effusion [Recovered/Resolved]
